FAERS Safety Report 15325227 (Version 1)
Quarter: 2018Q3

REPORT INFORMATION
  Report Type: Spontaneous
  Country: US (occurrence: US)
  Receive Date: 20180822
  Receipt Date: 20180822
  Transmission Date: 20181010
  Serious: No
  Sender: FDA-Public Use
  Company Number: None

PATIENT
  Age: 38 Day
  Sex: Female

DRUGS (1)
  1. RASUVO [Suspect]
     Active Substance: METHOTREXATE SODIUM
     Indication: RHEUMATOID ARTHRITIS
     Dosage: ?          OTHER DOSE:20MG (0.4ML) ;?
     Route: 058
     Dates: start: 201804

REACTIONS (4)
  - Therapeutic response decreased [None]
  - Oropharyngeal pain [None]
  - Pulmonary congestion [None]
  - Dyspnoea [None]
